FAERS Safety Report 10550389 (Version 2)
Quarter: 2014Q4

REPORT INFORMATION
  Report Type: Spontaneous
  Country: US (occurrence: US)
  Receive Date: 20141029
  Receipt Date: 20141029
  Transmission Date: 20150529
  Serious: No
  Sender: FDA-Public Use
  Company Number: US-TEVA-438905USA

PATIENT
  Sex: Male
  Weight: 86.26 kg

DRUGS (3)
  1. MODAFINIL. [Suspect]
     Active Substance: MODAFINIL
     Indication: NARCOLEPSY
  2. CHOLESTEROL STUDY MEDICATION [Concomitant]
     Indication: BLOOD CHOLESTEROL ABNORMAL
  3. MODAFINIL. [Suspect]
     Active Substance: MODAFINIL
     Indication: SOMNOLENCE
     Dosage: 400 MILLIGRAM DAILY;
     Route: 048

REACTIONS (1)
  - Drug ineffective [Recovered/Resolved]
